FAERS Safety Report 8889555 (Version 1)
Quarter: 2012Q4

REPORT INFORMATION
  Report Type: 
  Country: AU (occurrence: AU)
  Receive Date: 20121107
  Receipt Date: 20121107
  Transmission Date: 20130627
  Serious: Yes (Death, Other)
  Sender: FDA-Public Use
  Company Number: PHHY2012AU101304

PATIENT
  Age: 5 Month
  Sex: Male

DRUGS (5)
  1. CICLOSPORIN [Suspect]
     Indication: HISTIOCYTOSIS HAEMATOPHAGIC
  2. METHYLPREDNISOLONE [Suspect]
     Indication: HISTIOCYTOSIS HAEMATOPHAGIC
  3. FRESH FROZEN PLASMA [Concomitant]
  4. CEFOTAXIME [Concomitant]
  5. GENTAMICIN [Concomitant]

REACTIONS (9)
  - Multi-organ failure [Fatal]
  - Dehydration [Fatal]
  - Candidiasis [Unknown]
  - Sepsis [Unknown]
  - Hyperbilirubinaemia [Unknown]
  - Hepatic function abnormal [Unknown]
  - Ascites [Unknown]
  - Perforation bile duct [Unknown]
  - Recurrent cancer [Unknown]
